FAERS Safety Report 18126240 (Version 1)
Quarter: 2020Q3

REPORT INFORMATION
  Report Type: Spontaneous
  Country: ES (occurrence: ES)
  Receive Date: 20200808
  Receipt Date: 20200808
  Transmission Date: 20201103
  Serious: Yes (Other)
  Sender: FDA-Public Use
  Company Number: ES-DRREDDYS-GER/SPN/20/0125728

PATIENT
  Age: 73 Year
  Sex: Male
  Weight: 69 kg

DRUGS (4)
  1. CICLOFOSFAMIDA (120A) [Concomitant]
     Active Substance: CYCLOPHOSPHAMIDE
     Indication: PLASMA CELL MYELOMA
     Dosage: 150MG/24H
     Route: 048
  2. DEXAMETASONA (722A) [Suspect]
     Active Substance: DEXAMETHASONE
     Indication: PLASMA CELL MYELOMA
     Dosage: 40MG/24H
     Route: 048
     Dates: start: 20190913
  3. BORTEZOMIB. [Suspect]
     Active Substance: BORTEZOMIB
     Indication: PLASMA CELL MYELOMA
     Route: 058
     Dates: start: 20190913
  4. MOXIFLOXACINO (1119A) [Suspect]
     Active Substance: MOXIFLOXACIN HYDROCHLORIDE
     Indication: ANTIBIOTIC PROPHYLAXIS
     Dosage: 400MG/24H
     Route: 048
     Dates: start: 20190918

REACTIONS (1)
  - Hyperamylasaemia [Recovered/Resolved]

NARRATIVE: CASE EVENT DATE: 20190926
